FAERS Safety Report 8460254-1 (Version None)
Quarter: 2012Q2

REPORT INFORMATION
  Report Type: 
  Country: None (occurrence: None)
  Receive Date: 20120622
  Receipt Date: 20120611
  Transmission Date: 20120825
  Serious: No
  Sender: FDA-Public Use
  Company Number: US-ASTRAZENECA-2012SE38776

PATIENT
  Age: 59 Year
  Sex: Male
  Weight: 88.9 kg

DRUGS (5)
  1. VENTOLIN [Concomitant]
  2. SYMBICORT [Suspect]
     Indication: ASTHMA
     Dosage: 160/4.5 UNKNOWN
     Route: 055
     Dates: start: 20120426
  3. ACIPHEX [Concomitant]
     Indication: GASTROOESOPHAGEAL REFLUX DISEASE
  4. SYMBICORT [Suspect]
     Dosage: 320 MCG BID
     Route: 055
  5. VIAGRA [Concomitant]

REACTIONS (6)
  - SENSITIVITY OF TEETH [None]
  - LIP HAEMORRHAGE [None]
  - DRY MOUTH [None]
  - PRODUCTIVE COUGH [None]
  - DYSPHONIA [None]
  - CHAPPED LIPS [None]
